FAERS Safety Report 23917527 (Version 1)
Quarter: 2024Q2

REPORT INFORMATION
  Report Type: Report from Study
  Country: NL (occurrence: NL)
  Receive Date: 20240529
  Receipt Date: 20240529
  Transmission Date: 20240716
  Serious: Yes (Death)
  Sender: FDA-Public Use
  Company Number: NL-ABBVIE-5779250

PATIENT
  Age: 81 Year
  Sex: Male

DRUGS (5)
  1. CARBIDOPA\LEVODOPA [Suspect]
     Active Substance: CARBIDOPA\LEVODOPA
     Indication: Parkinson^s disease
     Dosage: CND: 0.8 ML/H?DURATION TEXT: REMAINS AT 24 HOURS
     Route: 050
     Dates: start: 20231023, end: 20231222
  2. CARBIDOPA\LEVODOPA [Suspect]
     Active Substance: CARBIDOPA\LEVODOPA
     Dosage: ND: 0.0 ML, END: 1.5 ML, CND: 0.8 ML/H?DURATION TEXT: REMAINS AT 24 HOURS?STOP DATE 2024
     Route: 050
     Dates: start: 20240408
  3. CARBIDOPA\LEVODOPA [Suspect]
     Active Substance: CARBIDOPA\LEVODOPA
     Dosage: MD: 8.6 ML, CD: 2.0 ML/H, ED: 1.5 ML;?DURATION TEXT: REMAINS AT 24 HOURS
     Route: 050
     Dates: start: 20240302, end: 20240408
  4. CARBIDOPA\LEVODOPA [Suspect]
     Active Substance: CARBIDOPA\LEVODOPA
     Dosage: DURATION TEXT: REMAINS AT 24 HOURS
     Route: 050
     Dates: start: 20190916
  5. CARBIDOPA\LEVODOPA [Suspect]
     Active Substance: CARBIDOPA\LEVODOPA
     Dosage: MD: 8.6 ML, CD: 2.0 ML/H, ED: 1.5 ML; ND: 0.0 ML, END: 1.5 ML, CND: 0.8 ML/H?DURATION TEXT: REMAI...
     Route: 050
     Dates: start: 20231222, end: 20240302

REACTIONS (1)
  - Death [Fatal]

NARRATIVE: CASE EVENT DATE: 20240525
